FAERS Safety Report 23567603 (Version 5)
Quarter: 2024Q1

REPORT INFORMATION
  Report Type: Spontaneous
  Country: JP (occurrence: JP)
  Receive Date: 20240226
  Receipt Date: 20240328
  Transmission Date: 20240410
  Serious: Yes (Hospitalization)
  Sender: FDA-Public Use
  Company Number: JP-002147023-NVSJ2024JP002416

PATIENT
  Age: 91 Year
  Sex: Female

DRUGS (3)
  1. ENTRESTO [Suspect]
     Active Substance: SACUBITRIL\VALSARTAN
     Indication: Hypertension
     Dosage: 200 MG
     Route: 048
     Dates: start: 20231216, end: 20240220
  2. ENTRESTO [Suspect]
     Active Substance: SACUBITRIL\VALSARTAN
     Indication: Cardiac failure
     Dosage: 200 MG
     Route: 048
     Dates: start: 202402
  3. DENOSUMAB [Concomitant]
     Active Substance: DENOSUMAB
     Indication: Product used for unknown indication
     Dosage: UNK
     Route: 058
     Dates: start: 20231216

REACTIONS (4)
  - Transient ischaemic attack [Recovering/Resolving]
  - Atrial fibrillation [Recovering/Resolving]
  - Loss of consciousness [Recovered/Resolved]
  - Tachycardia [Recovering/Resolving]

NARRATIVE: CASE EVENT DATE: 20240220
